FAERS Safety Report 12678912 (Version 1)
Quarter: 2016Q3

REPORT INFORMATION
  Report Type: Spontaneous
  Country: LK (occurrence: LK)
  Receive Date: 20160824
  Receipt Date: 20160824
  Transmission Date: 20161109
  Serious: Yes (Death)
  Sender: FDA-Public Use
  Company Number: LK-ROCHE-1809950

PATIENT
  Age: 3 Year
  Sex: Male
  Weight: 14 kg

DRUGS (5)
  1. ROCEPHIN [Suspect]
     Active Substance: CEFTRIAXONE SODIUM
     Indication: C-REACTIVE PROTEIN INCREASED
  2. ROCEPHIN [Suspect]
     Active Substance: CEFTRIAXONE SODIUM
     Indication: LOWER RESPIRATORY TRACT INFECTION
  3. ATALINE [Concomitant]
     Route: 048
     Dates: start: 20160802
  4. ROCEPHIN [Suspect]
     Active Substance: CEFTRIAXONE SODIUM
     Indication: WHITE BLOOD CELL COUNT INCREASED
     Route: 042
     Dates: start: 20160803, end: 20160803
  5. PIRITON [Concomitant]
     Active Substance: CHLORPHENIRAMINE MALEATE
     Route: 048
     Dates: start: 20160802

REACTIONS (3)
  - Cardiac failure [Fatal]
  - Blood pressure decreased [Fatal]
  - Cardiac arrest [Fatal]

NARRATIVE: CASE EVENT DATE: 20160803
